FAERS Safety Report 7655698-1 (Version None)
Quarter: 2011Q3

REPORT INFORMATION
  Report Type: 
  Country: None (occurrence: None)
  Receive Date: 20110801
  Receipt Date: 20110715
  Transmission Date: 20111222
  Serious: Yes (Hospitalization)
  Sender: FDA-Public Use
  Company Number: 2011MA008951

PATIENT
  Age: 72 Year
  Sex: Female

DRUGS (1)
  1. CARBAMAZEPINE [Suspect]
     Indication: PERIPHERAL SENSORY NEUROPATHY
     Dosage: 200 MG;TID;PO
     Route: 048
     Dates: start: 20091201

REACTIONS (3)
  - DRUG RASH WITH EOSINOPHILIA AND SYSTEMIC SYMPTOMS [None]
  - HAEMATURIA [None]
  - HEPATOCELLULAR INJURY [None]
